FAERS Safety Report 9629378 (Version 1)
Quarter: 2013Q4

REPORT INFORMATION
  Report Type: Spontaneous
  Country: US (occurrence: US)
  Receive Date: 20131017
  Receipt Date: 20131017
  Transmission Date: 20140711
  Serious: No
  Sender: FDA-Public Use
  Company Number: US-ASTRAZENECA-2013SE61479

PATIENT
  Age: 57 Year
  Sex: Female
  Weight: 76.2 kg

DRUGS (2)
  1. CRESTOR [Suspect]
     Indication: BLOOD CHOLESTEROL
     Route: 048
     Dates: start: 20130721, end: 20130803
  2. VITAMINS [Concomitant]

REACTIONS (6)
  - Gait disturbance [Recovering/Resolving]
  - Activities of daily living impaired [Recovering/Resolving]
  - Abulia [Recovering/Resolving]
  - Crying [Recovering/Resolving]
  - Emotional disorder [Recovering/Resolving]
  - Asthenia [Recovering/Resolving]
